FAERS Safety Report 21796804 (Version 9)
Quarter: 2023Q2

REPORT INFORMATION
  Report Type: Spontaneous
  Country: CA (occurrence: CA)
  Receive Date: 20221230
  Receipt Date: 20230607
  Transmission Date: 20230721
  Serious: Yes (Other)
  Sender: FDA-Public Use
  Company Number: CA-CELLTRION INC.-2022CA020041

PATIENT

DRUGS (16)
  1. INFLECTRA [Suspect]
     Active Substance: INFLIXIMAB-DYYB
     Indication: Colitis ulcerative
     Dosage: 5 MG/KG, WEEK 0
     Route: 042
     Dates: start: 20221105, end: 20221105
  2. INFLECTRA [Suspect]
     Active Substance: INFLIXIMAB-DYYB
     Dosage: 10 MG/KG, EVERY 8 WEEK (WEEK 4 THEN Q 8 WEEKS)
     Route: 042
     Dates: start: 20221105, end: 20221220
  3. INFLECTRA [Suspect]
     Active Substance: INFLIXIMAB-DYYB
     Dosage: 10 MG/KG, WEEK 2
     Route: 042
     Dates: start: 20221110, end: 20221110
  4. INFLECTRA [Suspect]
     Active Substance: INFLIXIMAB-DYYB
     Dosage: 10 MG/KG, WEEK 4 THEN Q 8 WEEKS
     Route: 042
     Dates: start: 20221123
  5. INFLECTRA [Suspect]
     Active Substance: INFLIXIMAB-DYYB
     Dosage: 10 MG/KG, WEEK 4 THEN Q 8 WEEKS
     Route: 042
     Dates: start: 20221220
  6. INFLECTRA [Suspect]
     Active Substance: INFLIXIMAB-DYYB
     Dosage: 700 MG, EVERY 4 WEEK  FOR 12 MONTHS
     Route: 042
     Dates: start: 20230124
  7. INFLECTRA [Suspect]
     Active Substance: INFLIXIMAB-DYYB
     Dosage: 700 MG, EVERY 4 WEEKS
     Route: 042
     Dates: start: 20230124
  8. INFLECTRA [Suspect]
     Active Substance: INFLIXIMAB-DYYB
     Dosage: 700 MG, (EVERY 4 WEEKS)
     Route: 042
     Dates: start: 20230221
  9. INFLECTRA [Suspect]
     Active Substance: INFLIXIMAB-DYYB
     Dosage: 700 MG, (EVERY 4 WEEKS)
     Route: 042
     Dates: start: 20230321, end: 20230321
  10. CALCIUM [Concomitant]
     Active Substance: CALCIUM
     Dosage: 1 DF, 2X/DAY
  11. CALCIUM [Concomitant]
     Active Substance: CALCIUM
     Dosage: 1 DF, 2X/DAY
     Dates: start: 20230124
  12. CALCIUM [Concomitant]
     Active Substance: CALCIUM
     Dosage: 1 DF, BID 2X/DAY
     Dates: end: 20230124
  13. IRON [Concomitant]
     Active Substance: IRON
     Dosage: 1 DF, 2X/DAY (BID)
  14. PREDNISONE [Concomitant]
     Active Substance: PREDNISONE
     Dosage: 30 MG
  15. PREDNISONE [Concomitant]
     Active Substance: PREDNISONE
     Dosage: 30 MG
     Dates: start: 20230124
  16. PREDNISONE [Concomitant]
     Active Substance: PREDNISONE
     Dosage: 30 MG
     Dates: end: 20230124

REACTIONS (11)
  - Diarrhoea haemorrhagic [Not Recovered/Not Resolved]
  - Weight increased [Unknown]
  - Condition aggravated [Not Recovered/Not Resolved]
  - Drug ineffective [Recovering/Resolving]
  - Drug level below therapeutic [Unknown]
  - Drug specific antibody present [Unknown]
  - Off label use [Unknown]
  - Off label use [Unknown]
  - Hypertension [Unknown]
  - Rash maculo-papular [Recovered/Resolved]
  - Malaise [Unknown]

NARRATIVE: CASE EVENT DATE: 20220101
